FAERS Safety Report 9169914 (Version 1)
Quarter: 2013Q1

REPORT INFORMATION
  Report Type: Spontaneous
  Country: US (occurrence: None)
  Receive Date: 20130314
  Receipt Date: 20130314
  Transmission Date: 20140127
  Serious: Yes (Other)
  Sender: FDA-Public Use
  Company Number: None

PATIENT
  Age: 61 Year
  Sex: Male
  Weight: 79.38 kg

DRUGS (1)
  1. XALATAN [Suspect]
     Route: 031
     Dates: start: 2008, end: 2009

REACTIONS (8)
  - Vision blurred [None]
  - Erythema of eyelid [None]
  - Ocular hyperaemia [None]
  - Hordeolum [None]
  - Skin necrosis [None]
  - Eye inflammation [None]
  - Visual acuity reduced [None]
  - Agitation [None]
